FAERS Safety Report 11877073 (Version 2)
Quarter: 2016Q1

REPORT INFORMATION
  Report Type: Spontaneous
  Country: US (occurrence: US)
  Receive Date: 20151229
  Receipt Date: 20160304
  Transmission Date: 20160526
  Serious: Yes (Hospitalization, Other)
  Sender: FDA-Public Use
  Company Number: US-GLAXOSMITHKLINE-US2015181733

PATIENT
  Age: 70 Year
  Sex: Female

DRUGS (10)
  1. XANAX [Concomitant]
     Active Substance: ALPRAZOLAM
  2. CALCIUM WITH VITAMIN D [Concomitant]
     Active Substance: CALCIUM\VITAMIN D
  3. LASIX [Concomitant]
     Active Substance: FUROSEMIDE
  4. NEURONTIN [Concomitant]
     Active Substance: GABAPENTIN
  5. EPIVIR [Suspect]
     Active Substance: LAMIVUDINE
     Indication: LIVER TRANSPLANT
     Dosage: 150 MG, 1D
     Dates: start: 1998
  6. LISINOPRIL. [Concomitant]
     Active Substance: LISINOPRIL
  7. ATENOLOL. [Concomitant]
     Active Substance: ATENOLOL
  8. NORTRIPTYLINE [Concomitant]
     Active Substance: NORTRIPTYLINE
  9. ASACOL [Concomitant]
     Active Substance: MESALAMINE
  10. NEORAL [Concomitant]
     Active Substance: CYCLOSPORINE

REACTIONS (6)
  - Eye pruritus [Recovered/Resolved]
  - Pulmonary oedema [Not Recovered/Not Resolved]
  - Mouth swelling [Recovered/Resolved]
  - Pneumonia [Recovered/Resolved]
  - Dyspnoea [Not Recovered/Not Resolved]
  - Swelling face [Recovered/Resolved]

NARRATIVE: CASE EVENT DATE: 20151214
